FAERS Safety Report 5314751-8 (Version None)
Quarter: 2007Q2

REPORT INFORMATION
  Report Type: 
  Country: None (occurrence: None)
  Receive Date: 20070427
  Receipt Date: 20070412
  Transmission Date: 20071010
  Serious: Yes (Life-Threatening, Hospitalization, Disabling, Other)
  Sender: FDA-Public Use
  Company Number: VNL_0494-2007

PATIENT
  Sex: Female

DRUGS (5)
  1. APOMORPHINE (APOMORPHINE) [Suspect]
     Indication: PARKINSON'S DISEASE
     Dosage: (SUBCUTANEOUS)
     Route: 058
     Dates: start: 20041220, end: 20050901
  2. APOMORPINE (APOMORPHINE) [Suspect]
     Indication: PARKINSON'S DISEASE
     Dosage: (SUBCUTANEOUS)
     Route: 058
     Dates: start: 20050901, end: 20051109
  3. APOMORPHINE (APOMORPHINE) [Suspect]
     Indication: PARKINSON'S DISEASE
     Dosage: (SUBCUTANEOUS)
     Route: 058
     Dates: start: 20060101
  4. LEVODOPA [Concomitant]
  5. PRAMIPEXOLE DIHYDROCHLORIDE [Concomitant]

REACTIONS (9)
  - AGITATION [None]
  - ANOREXIA [None]
  - DELUSION [None]
  - FEAR [None]
  - HALLUCINATION, AUDITORY [None]
  - HALLUCINATION, VISUAL [None]
  - PARANOIA [None]
  - POOR QUALITY SLEEP [None]
  - SUICIDE ATTEMPT [None]
